FAERS Safety Report 14326100 (Version 1)
Quarter: 2017Q4

REPORT INFORMATION
  Report Type: Spontaneous
  Country: RO (occurrence: RO)
  Receive Date: 20171226
  Receipt Date: 20171226
  Transmission Date: 20180321
  Serious: Yes (Other)
  Sender: FDA-Public Use
  Company Number: RO-BAUSCH-BL-2017-004932

PATIENT
  Age: 62 Year
  Sex: Female

DRUGS (2)
  1. ACYCLOVIR. [Suspect]
     Active Substance: ACYCLOVIR
     Route: 061
  2. ACYCLOVIR. [Suspect]
     Active Substance: ACYCLOVIR
     Indication: HERPES ZOSTER
     Route: 048

REACTIONS (5)
  - Skin plaque [Recovering/Resolving]
  - Erythema [Unknown]
  - Dermatitis contact [Recovering/Resolving]
  - Pruritus [Recovering/Resolving]
  - Dermatitis [Unknown]
